FAERS Safety Report 5293804-7 (Version None)
Quarter: 2007Q2

REPORT INFORMATION
  Report Type: 
  Country: None (occurrence: None)
  Receive Date: 20070411
  Receipt Date: 20070401
  Transmission Date: 20071010
  Serious: Yes (Other)
  Sender: FDA-Public Use
  Company Number: US-PFIZER INC-2007027290

PATIENT
  Sex: Female

DRUGS (7)
  1. CHANTIX [Suspect]
     Indication: EX-SMOKER
     Route: 048
  2. LEVOTHYROXINE SODIUM [Concomitant]
     Indication: THYROID DISORDER
     Route: 048
  3. COZAAR [Concomitant]
     Indication: HYPERTENSION
     Route: 048
  4. TRIAMTERENE AND HYDROCHLOROTHIAZIDE [Concomitant]
     Indication: HYPERTENSION
     Route: 048
  5. TOPAMAX [Concomitant]
     Indication: HEADACHE
     Route: 048
  6. TOPROL-XL [Concomitant]
     Route: 048
  7. SERTRALINE [Concomitant]
     Indication: DEPRESSION
     Route: 048

REACTIONS (3)
  - NAUSEA [None]
  - ORAL INTAKE REDUCED [None]
  - WEIGHT DECREASED [None]
